FAERS Safety Report 5929124-4 (Version None)
Quarter: 2008Q4

REPORT INFORMATION
  Report Type: 
  Country: None (occurrence: None)
  Receive Date: 20081023
  Receipt Date: 20081023
  Transmission Date: 20090506
  Serious: Yes (Life-Threatening, Hospitalization)
  Sender: FDA-Public Use
  Company Number: None

PATIENT
  Sex: Female
  Weight: 113.3993 kg

DRUGS (1)
  1. PROHANCE [Suspect]
     Indication: NUCLEAR MAGNETIC RESONANCE IMAGING
     Dosage: 20 ML INJECTED 1
     Dates: start: 20081017, end: 20081017

REACTIONS (5)
  - COUGH [None]
  - DYSPNOEA [None]
  - NASAL CONGESTION [None]
  - SNEEZING [None]
  - THROAT TIGHTNESS [None]
